FAERS Safety Report 16752484 (Version 1)
Quarter: 2019Q3

REPORT INFORMATION
  Report Type: Spontaneous
  Country: CA (occurrence: CA)
  Receive Date: 20190828
  Receipt Date: 20190828
  Transmission Date: 20191005
  Serious: Yes (Other)
  Sender: FDA-Public Use
  Company Number: CA-PFIZER INC-2019363392

PATIENT
  Age: 39 Year
  Sex: Male
  Weight: 105 kg

DRUGS (1)
  1. MARCAINE [Suspect]
     Active Substance: BUPIVACAINE HYDROCHLORIDE
     Indication: SPINAL ANAESTHESIA
     Dosage: 8.25 MG, SINGLE
     Route: 024

REACTIONS (2)
  - Anaesthetic complication [Recovering/Resolving]
  - Incision site pain [Recovering/Resolving]
